FAERS Safety Report 8327126-4 (Version None)
Quarter: 2012Q2

REPORT INFORMATION
  Report Type: 
  Country: None (occurrence: None)
  Receive Date: 20120501
  Receipt Date: 20120405
  Transmission Date: 20120825
  Serious: No
  Sender: FDA-Public Use
  Company Number: US-SANOFI-AVENTIS-2012SA024045

PATIENT
  Age: 34 Year
  Sex: Male

DRUGS (5)
  1. SOLOSTAR [Suspect]
  2. APIDRA [Suspect]
     Dosage: FOR VIAL
     Route: 058
  3. SOLOSTAR [Suspect]
  4. LANTUS [Suspect]
     Route: 058
  5. APIDRA [Suspect]
     Dosage: DOSING FOR PEN
     Route: 058
     Dates: start: 20101101

REACTIONS (3)
  - BLOOD GLUCOSE DECREASED [None]
  - WEIGHT DECREASED [None]
  - DRUG INEFFECTIVE [None]
